FAERS Safety Report 5008971-X (Version None)
Quarter: 2006Q2

REPORT INFORMATION
  Report Type: 
  Country: None (occurrence: None)
  Receive Date: 20060523
  Receipt Date: 20060328
  Transmission Date: 20061013
  Serious: Yes (Hospitalization)
  Sender: FDA-Public Use
  Company Number: 2006GB00527

PATIENT
  Age: 6983 Day
  Sex: Female

DRUGS (3)
  1. QUETIAPINE FUMARATE [Suspect]
     Indication: PSYCHOTIC DISORDER
     Route: 048
     Dates: start: 20060104
  2. QUETIAPINE FUMARATE [Suspect]
     Route: 048
     Dates: start: 20060326, end: 20060326
  3. ALFACALCIDOL [Concomitant]
     Route: 048

REACTIONS (6)
  - DECREASED APPETITE [None]
  - DIZZINESS [None]
  - FEELING HOT [None]
  - HYPERHIDROSIS [None]
  - MALAISE [None]
  - OVERDOSE [None]
